FAERS Safety Report 15243742 (Version 1)
Quarter: 2018Q3

REPORT INFORMATION
  Report Type: Spontaneous
  Country: US (occurrence: US)
  Receive Date: 20180806
  Receipt Date: 20180806
  Transmission Date: 20181010
  Serious: No
  Sender: FDA-Public Use
  Company Number: US-ABBVIE-18P-163-2338550-00

PATIENT

DRUGS (1)
  1. MAVYRET [Suspect]
     Active Substance: GLECAPREVIR\PIBRENTASVIR
     Indication: CHRONIC HEPATITIS C
     Route: 065

REACTIONS (7)
  - Affect lability [Unknown]
  - Anxiety [Unknown]
  - Heart rate increased [Unknown]
  - Arrhythmia [Unknown]
  - Feeling abnormal [Unknown]
  - Fear [Unknown]
  - Nasopharyngitis [Unknown]
